FAERS Safety Report 9828909 (Version 1)
Quarter: 2014Q1

REPORT INFORMATION
  Report Type: Report from Study
  Country: US (occurrence: US)
  Receive Date: 20140118
  Receipt Date: 20140118
  Transmission Date: 20141002
  Serious: Yes (Hospitalization)
  Sender: FDA-Public Use
  Company Number: US-ABBVIE-14P-163-1188425-00

PATIENT
  Age: 67 Year
  Sex: Male

DRUGS (9)
  1. HUMIRA [Suspect]
     Indication: CROHN^S DISEASE
     Dates: start: 201309
  2. IMURAN [Concomitant]
     Indication: CROHN^S DISEASE
  3. PRILOSEC [Concomitant]
     Indication: GASTRIC DISORDER
  4. PREDNISONE [Concomitant]
     Indication: CROHN^S DISEASE
  5. ELAVIL [Concomitant]
     Indication: INSOMNIA
  6. RESTORIL [Concomitant]
     Indication: INSOMNIA
  7. UROXATRAL [Concomitant]
     Indication: PROSTATOMEGALY
  8. GLYBURIDE [Concomitant]
     Indication: HYPERGLYCAEMIA
     Dosage: 2 PILLS DAILY
  9. FOSAMAX [Concomitant]
     Indication: OSTEOPOROSIS

REACTIONS (5)
  - Chills [Recovering/Resolving]
  - Dizziness [Recovering/Resolving]
  - Asthenia [Recovering/Resolving]
  - Pneumonia [Recovering/Resolving]
  - Pyrexia [Recovering/Resolving]
